FAERS Safety Report 5047039-3 (Version None)
Quarter: 2006Q3

REPORT INFORMATION
  Report Type: 
  Country: None (occurrence: None)
  Receive Date: 20060703
  Receipt Date: 20060621
  Transmission Date: 20061208
  Serious: Yes (Death)
  Sender: FDA-Public Use
  Company Number: 2006018248

PATIENT
  Age: 77 Year
  Sex: Female

DRUGS (7)
  1. LIPITOR [Suspect]
     Indication: CEREBROVASCULAR DISORDER
     Dosage: 20 MG (20 MG, 1 IN 1 D), ORAL
     Route: 048
     Dates: start: 20051201
  2. PLAVIX [Concomitant]
  3. PANTOPRAZOLE SODIUM [Concomitant]
  4. CENTYL K (BENDROFLUMETHIAZIDE, POTASSIUM CHLORIDE) [Concomitant]
  5. MESULID (NIMESULIDE) [Concomitant]
  6. ATENOGEN (ATENOLOL) [Concomitant]
  7. AMLODIPINE [Concomitant]

REACTIONS (6)
  - CYST [None]
  - HEPATIC STEATOSIS [None]
  - JOINT SWELLING [None]
  - MUSCULOSKELETAL STIFFNESS [None]
  - RENAL FAILURE [None]
  - RHABDOMYOLYSIS [None]
